FAERS Safety Report 6518681-5 (Version None)
Quarter: 2009Q4

REPORT INFORMATION
  Report Type: 
  Country: None (occurrence: None)
  Receive Date: 20091228
  Receipt Date: 20091221
  Transmission Date: 20100525
  Serious: Yes (Other)
  Sender: FDA-Public Use
  Company Number: GB-ROCHE-675902

PATIENT
  Age: 5 Year
  Sex: Female

DRUGS (1)
  1. TAMIFLU [Suspect]
     Indication: DRUG USE FOR UNKNOWN INDICATION
     Dosage: DRUG INDICATION: NHS DIRECT ASSESMENT
     Route: 065

REACTIONS (3)
  - ABDOMINAL PAIN UPPER [None]
  - EXPRESSIVE LANGUAGE DISORDER [None]
  - HALLUCINATION [None]
